FAERS Safety Report 10361102 (Version 2)
Quarter: 2014Q3

REPORT INFORMATION
  Report Type: Spontaneous
  Country: PT (occurrence: None)
  Receive Date: 20140731
  Receipt Date: 20140814
  Transmission Date: 20150326
  Serious: Yes (Disabling, Other)
  Sender: FDA-Public Use
  Company Number: SYM-2014-23541

PATIENT
  Age: 52 Year
  Sex: Male

DRUGS (1)
  1. ELONTRIL [Suspect]
     Active Substance: BUPROPION HYDROCHLORIDE
     Indication: SMOKING CESSATION THERAPY
     Route: 048
     Dates: start: 20140519, end: 20140620

REACTIONS (1)
  - Psoriasis [None]

NARRATIVE: CASE EVENT DATE: 20140619
